FAERS Safety Report 4696599-0 (Version None)
Quarter: 2005Q2

REPORT INFORMATION
  Report Type: 
  Country: None (occurrence: None)
  Receive Date: 20050620
  Receipt Date: 20050406
  Transmission Date: 20051028
  Serious: Yes (Other)
  Sender: FDA-Public Use
  Company Number: 200512798US

PATIENT
  Age: 49 Year
  Sex: Female
  Weight: 65.9 kg

DRUGS (11)
  1. LANTUS [Suspect]
     Indication: DIABETES MELLITUS INSULIN-DEPENDENT
     Dosage: 18 U HS SC
     Route: 058
     Dates: start: 20050404
  2. REGULAR INSULIN [Concomitant]
  3. HUMALOG [Concomitant]
  4. INSULIN INJECTION, ISOPHANE (NPH INSULIN) [Concomitant]
  5. BLOOD PRESSURE PILLS NOS [Concomitant]
  6. WATER PILL NOS [Concomitant]
  7. DEPRESSION MEDICATION NOS [Concomitant]
  8. CAPTOPRIL [Concomitant]
  9. HYDROCHLORIDE [Concomitant]
  10. VENLAFAXINE (EFFEXOR XR) [Concomitant]
  11. CALCIUM GLUCONATE [Concomitant]

REACTIONS (5)
  - BLOOD GLUCOSE DECREASED [None]
  - BLOOD GLUCOSE INCREASED [None]
  - FEELING ABNORMAL [None]
  - HYPOGLYCAEMIA [None]
  - HYPOGLYCAEMIC COMA [None]
